FAERS Safety Report 5798534-0 (Version None)
Quarter: 2008Q2

REPORT INFORMATION
  Report Type: 
  Country: None (occurrence: None)
  Receive Date: 20080630
  Receipt Date: 20080617
  Transmission Date: 20081010
  Serious: Yes (Death)
  Sender: FDA-Public Use
  Company Number: 013684

PATIENT
  Sex: Female

DRUGS (1)
  1. PRIALT [Suspect]
     Indication: PAIN
     Dosage: 0.15 UG, ONCE/HOUR, INTRATHECAL
     Route: 037
     Dates: start: 20080326, end: 20080601

REACTIONS (1)
  - MALIGNANT NEOPLASM PROGRESSION [None]
